FAERS Safety Report 6914694-X (Version None)
Quarter: 2010Q3

REPORT INFORMATION
  Report Type: 
  Country: None (occurrence: None)
  Receive Date: 20100804
  Receipt Date: 20100804
  Transmission Date: 20110219
  Serious: No
  Sender: FDA-Public Use
  Company Number: None

PATIENT
  Sex: Female
  Weight: 50.3 kg

DRUGS (10)
  1. CARBOPLATIN [Suspect]
     Dosage: 2373 MG
     Dates: end: 20100409
  2. CYCLOPHOSPHAMIDE [Suspect]
     Dosage: 918 MG
     Dates: end: 20100430
  3. DOXORUBICIN HYDROCHLORIDE [Suspect]
     Dosage: 92 MG
     Dates: end: 20100430
  4. TAXOL [Suspect]
     Dosage: 1342 MG
     Dates: end: 20100416
  5. BACTRIM [Concomitant]
  6. DECADRON [Concomitant]
  7. NEUPOGEN [Concomitant]
  8. FAMVIR [Concomitant]
  9. LORAZEPAM [Concomitant]
  10. ZOFRAN [Concomitant]

REACTIONS (1)
  - PLATELET COUNT DECREASED [None]
